FAERS Safety Report 5537506-8 (Version None)
Quarter: 2007Q4

REPORT INFORMATION
  Report Type: 
  Country: None (occurrence: None)
  Receive Date: 20071207
  Receipt Date: 20071129
  Transmission Date: 20080405
  Serious: Yes (Other)
  Sender: FDA-Public Use
  Company Number: US-ELI_LILLY_AND_COMPANY-US200711006900

PATIENT
  Age: 70 Year
  Sex: Female

DRUGS (5)
  1. HUMULIN N [Suspect]
  2. ACCUPRIL [Concomitant]
  3. VERAPAMIL [Concomitant]
  4. LOVASTIN [Concomitant]
  5. NORVASC [Concomitant]

REACTIONS (3)
  - BREAST CANCER [None]
  - FALL [None]
  - FOOT FRACTURE [None]
